FAERS Safety Report 10638834 (Version 2)
Quarter: 2014Q4

REPORT INFORMATION
  Report Type: Spontaneous
  Country: PL (occurrence: PL)
  Receive Date: 20141208
  Receipt Date: 20141208
  Transmission Date: 20150529
  Serious: Yes (Other)
  Sender: FDA-Public Use
  Company Number: PL-BAXTER-2014BAX067739

PATIENT
  Age: 16 Year
  Sex: Female

DRUGS (3)
  1. KIOVIG [Suspect]
     Active Substance: HUMAN IMMUNOGLOBULIN G
     Indication: THROMBOCYTOPENIA
     Dosage: 0.5 G PER KG OF BODY WEIGHT
     Route: 042
  2. ETAMSYLATE [Suspect]
     Active Substance: ETHAMSYLATE
     Indication: HAEMOSTASIS
     Route: 065
  3. RUTIN [Suspect]
     Active Substance: RUTIN
     Indication: HAEMOSTASIS
     Route: 065

REACTIONS (1)
  - Platelet count decreased [Not Recovered/Not Resolved]
